FAERS Safety Report 14547457 (Version 1)
Quarter: 2018Q1

REPORT INFORMATION
  Report Type: Report from Study
  Country: CA (occurrence: CA)
  Receive Date: 20180219
  Receipt Date: 20180219
  Transmission Date: 20180509
  Serious: Yes (Other)
  Sender: FDA-Public Use
  Company Number: CA-JNJFOC-20180219716

PATIENT
  Age: 49 Year
  Sex: Male
  Weight: 95 kg

DRUGS (1)
  1. STELARA [Suspect]
     Active Substance: USTEKINUMAB
     Indication: CROHN^S DISEASE
     Dosage: STRENGTH = 90 MG
     Route: 058
     Dates: start: 20150511

REACTIONS (5)
  - Scar [Unknown]
  - Gastrointestinal infection [Unknown]
  - Off label use [Unknown]
  - Product use issue [Unknown]
  - Intestinal resection [Unknown]

NARRATIVE: CASE EVENT DATE: 20150511
